FAERS Safety Report 11689231 (Version 3)
Quarter: 2015Q4

REPORT INFORMATION
  Report Type: Spontaneous
  Country: ES (occurrence: ES)
  Receive Date: 20151102
  Receipt Date: 20151130
  Transmission Date: 20160304
  Serious: Yes (Hospitalization, Other)
  Sender: FDA-Public Use
  Company Number: PHHY2015ES139299

PATIENT
  Age: 15 Year
  Sex: Male
  Weight: 84 kg

DRUGS (1)
  1. REVOLADE [Suspect]
     Active Substance: ELTROMBOPAG
     Indication: IMMUNE THROMBOCYTOPENIC PURPURA
     Dosage: 75 MG, QD
     Route: 048
     Dates: start: 20141127, end: 20151008

REACTIONS (9)
  - Papilloedema [Unknown]
  - Migraine [Unknown]
  - Cerebral venous thrombosis [Recovered/Resolved with Sequelae]
  - Headache [Recovering/Resolving]
  - Platelet count decreased [Recovering/Resolving]
  - Autonomic nervous system imbalance [Unknown]
  - Benign intracranial hypertension [Unknown]
  - Epistaxis [Unknown]
  - Off label use [Unknown]

NARRATIVE: CASE EVENT DATE: 20150909
